FAERS Safety Report 4765665-3 (Version None)
Quarter: 2005Q3

REPORT INFORMATION
  Report Type: 
  Country: None (occurrence: None)
  Receive Date: 20050906
  Receipt Date: 20050824
  Transmission Date: 20060218
  Serious: Yes (Disabling)
  Sender: FDA-Public Use
  Company Number: 2005120917

PATIENT
  Sex: Female
  Weight: 60 kg

DRUGS (1)
  1. AROMASIN [Suspect]
     Indication: BREAST CANCER
     Dosage: 25 MG (25 MG, ONCE A DAY), ORAL
     Route: 048
     Dates: start: 20030801, end: 20050805

REACTIONS (3)
  - HEAD DISCOMFORT [None]
  - PARAESTHESIA [None]
  - TINNITUS [None]
